FAERS Safety Report 8306448-7 (Version None)
Quarter: 2012Q2

REPORT INFORMATION
  Report Type: 
  Country: None (occurrence: None)
  Receive Date: 20120424
  Receipt Date: 20120418
  Transmission Date: 20120825
  Serious: Yes (Other)
  Sender: FDA-Public Use
  Company Number: PHHY2012TN033365

PATIENT

DRUGS (4)
  1. COTRIM [Suspect]
  2. PHENOBARBITAL TAB [Suspect]
  3. ACETYLSALICYLIC ACID SRT [Suspect]
  4. ACETAMINOPHEN [Suspect]

REACTIONS (2)
  - DRUG ERUPTION [None]
  - PIGMENTATION DISORDER [None]
